FAERS Safety Report 12550641 (Version 1)
Quarter: 2016Q3

REPORT INFORMATION
  Report Type: Other
  Country: FR (occurrence: FR)
  Receive Date: 20160712
  Receipt Date: 20160712
  Transmission Date: 20161109
  Serious: Yes (Hospitalization)
  Sender: FDA-Public Use
  Company Number: FR-PFM-FR-2016-2105

PATIENT
  Age: 5 Month
  Sex: Female
  Weight: 10 kg

DRUGS (4)
  1. HEMANGIOL [Suspect]
     Active Substance: PROPRANOLOL HYDROCHLORIDE
     Indication: HAEMANGIOMA
     Dosage: UNK
     Route: 048
     Dates: start: 20151012
  2. HEMANGIOL [Suspect]
     Active Substance: PROPRANOLOL HYDROCHLORIDE
     Dosage: 12.7 MG, BID (2/DAY)
     Route: 048
     Dates: start: 20151207
  3. CAFFEINE. [Concomitant]
     Active Substance: CAFFEINE
     Indication: SLEEP APNOEA SYNDROME
     Dosage: UNK
     Route: 065
     Dates: start: 201504, end: 201509
  4. HEMANGIOL [Suspect]
     Active Substance: PROPRANOLOL HYDROCHLORIDE
     Dosage: UNK
     Route: 048
     Dates: end: 20151220

REACTIONS (3)
  - Cyanosis [Recovered/Resolved]
  - Loss of consciousness [Recovered/Resolved]
  - Drug administered to patient of inappropriate age [Recovered/Resolved]

NARRATIVE: CASE EVENT DATE: 20151012
